FAERS Safety Report 19913076 (Version 2)
Quarter: 2021Q4

REPORT INFORMATION
  Report Type: Spontaneous
  Country: CN (occurrence: CN)
  Receive Date: 20211004
  Receipt Date: 20211103
  Transmission Date: 20220303
  Serious: Yes (Other)
  Sender: FDA-Public Use
  Company Number: CN-DRREDDYS-SPO/CHN/21/0141474

PATIENT
  Sex: Male

DRUGS (3)
  1. OLANZAPINE [Suspect]
     Active Substance: OLANZAPINE
     Indication: Schizophrenia
     Dosage: 20 MG (5 MG, 4 TABLETS PER DAY)
     Route: 048
     Dates: start: 2016
  2. LURASIDONE [Concomitant]
     Active Substance: LURASIDONE
     Indication: Cerebral disorder
  3. CLOZAPINE [Concomitant]
     Active Substance: CLOZAPINE
     Indication: Product used for unknown indication

REACTIONS (1)
  - Therapeutic product effect incomplete [Recovering/Resolving]
